FAERS Safety Report 18876938 (Version 1)
Quarter: 2021Q1

REPORT INFORMATION
  Report Type: Spontaneous
  Country: US (occurrence: US)
  Receive Date: 20210210
  Receipt Date: 20210210
  Transmission Date: 20210420
  Serious: Yes (Hospitalization)
  Sender: FDA-Public Use
  Company Number: None

PATIENT
  Age: 81 Year
  Sex: Male
  Weight: 92.6 kg

DRUGS (1)
  1. ERBITUX [Suspect]
     Active Substance: CETUXIMAB
     Dates: end: 20201116

REACTIONS (18)
  - Catheter site pain [None]
  - Dysphagia [None]
  - Blood urea increased [None]
  - Blood albumin decreased [None]
  - Atelectasis [None]
  - Blood creatinine increased [None]
  - Fibrin D dimer increased [None]
  - Complication associated with device [None]
  - Weight decreased [None]
  - C-reactive protein abnormal [None]
  - Chest X-ray abnormal [None]
  - Odynophagia [None]
  - SARS-CoV-2 test positive [None]
  - Blood sodium increased [None]
  - Pulmonary fibrosis [None]
  - Blood chloride increased [None]
  - International normalised ratio abnormal [None]
  - Glomerular filtration rate decreased [None]

NARRATIVE: CASE EVENT DATE: 20201216
